FAERS Safety Report 26042899 (Version 1)
Quarter: 2025Q4

REPORT INFORMATION
  Report Type: Spontaneous
  Country: EU (occurrence: EU)
  Receive Date: 20251113
  Receipt Date: 20251113
  Transmission Date: 20260117
  Serious: Yes (Hospitalization, Other)
  Sender: VERTEX
  Company Number: None

PATIENT
  Age: 11 Year
  Sex: Male
  Weight: 30 kg

DRUGS (2)
  1. ELEXACAFTOR\IVACAFTOR\TEZACAFTOR [Suspect]
     Active Substance: ELEXACAFTOR\IVACAFTOR\TEZACAFTOR
     Indication: Cystic fibrosis
     Dosage: 37.5 MG IVA/ 25 MG TEZA/ 50 MG ELEXA
     Route: 048
     Dates: start: 202302, end: 20251017
  2. KALYDECO [Suspect]
     Active Substance: IVACAFTOR
     Indication: Cystic fibrosis
     Dosage: 75 MG IVA
     Route: 048
     Dates: start: 202302, end: 20251017

REACTIONS (1)
  - Posterior reversible encephalopathy syndrome [Not Recovered/Not Resolved]

NARRATIVE: CASE EVENT DATE: 20251014
